FAERS Safety Report 9003479 (Version 1)
Quarter: 2013Q1

REPORT INFORMATION
  Report Type: Spontaneous
  Country: US (occurrence: US)
  Receive Date: 20130108
  Receipt Date: 20130108
  Transmission Date: 20140127
  Serious: Yes (Other)
  Sender: FDA-Public Use
  Company Number: CHPA2012US026121

PATIENT
  Age: 72 Year
  Sex: Male

DRUGS (3)
  1. BENEFIBER UNKNOWN [Suspect]
     Indication: CONSTIPATION
     Dosage: 1 TO 2 TSP, BID
     Route: 048
  2. POLYETHYLENE GLYCOL [Concomitant]
     Indication: CONSTIPATION
     Dosage: UNK, UNK
     Route: 048
  3. METAMUCIL [Concomitant]
     Dosage: UNK, UNK

REACTIONS (4)
  - Polyp [Recovered/Resolved]
  - Therapeutic response unexpected [Unknown]
  - Off label use [Unknown]
  - Underdose [Unknown]
